FAERS Safety Report 7574018-4 (Version None)
Quarter: 2011Q2

REPORT INFORMATION
  Report Type: 
  Country: None (occurrence: None)
  Receive Date: 20110621
  Receipt Date: 20110615
  Transmission Date: 20111010
  Serious: Yes (Hospitalization)
  Sender: FDA-Public Use
  Company Number: 2011SP028034

PATIENT
  Age: 47 Year
  Sex: Male

DRUGS (2)
  1. SAPHRIS [Suspect]
     Indication: DELUSION
     Dosage: 5 MG;BID;SL
     Route: 060
     Dates: start: 20110101
  2. PRILOSEC [Concomitant]

REACTIONS (3)
  - AGGRESSION [None]
  - DELUSION [None]
  - STRESS [None]
